FAERS Safety Report 9218296 (Version 3)
Quarter: 2013Q2

REPORT INFORMATION
  Report Type: Spontaneous
  Country: US (occurrence: US)
  Receive Date: 20130409
  Receipt Date: 20130604
  Transmission Date: 20140414
  Serious: Yes (Life-Threatening, Hospitalization)
  Sender: FDA-Public Use
  Company Number: US-009507513-1304USA002420

PATIENT
  Age: 32 Year
  Sex: Female

DRUGS (1)
  1. SAPHRIS [Suspect]
     Dosage: 10 MG, QD, 1 STANDARD PACKAGE BOTTLE OF 30
     Route: 060

REACTIONS (1)
  - Varices oesophageal [Unknown]
